FAERS Safety Report 24636213 (Version 1)
Quarter: 2024Q4

REPORT INFORMATION
  Report Type: Spontaneous
  Country: JP (occurrence: JP)
  Receive Date: 20241119
  Receipt Date: 20241119
  Transmission Date: 20250115
  Serious: Yes (Other)
  Sender: REGENERON
  Company Number: JP-BAYER-2024A163950

PATIENT
  Age: 87 Year
  Sex: Male

DRUGS (1)
  1. EYLEA HD [Suspect]
     Active Substance: AFLIBERCEPT
     Indication: Age-related macular degeneration
     Dosage: 0.07 ML, ONCE IN EVERY 6 MONTHS, TREATED EYE UNKNOWN, SOLUTION FOR INJECTION, 114.3 MG/ML
     Route: 031
     Dates: start: 202408, end: 20241115

REACTIONS (1)
  - Subdural haemorrhage [Not Recovered/Not Resolved]

NARRATIVE: CASE EVENT DATE: 20241115
